FAERS Safety Report 10778922 (Version 1)
Quarter: 2015Q1

REPORT INFORMATION
  Report Type: Spontaneous
  Country: US (occurrence: None)
  Receive Date: 20150205
  Receipt Date: 20150205
  Transmission Date: 20150721
  Serious: No
  Sender: FDA-Public Use
  Company Number: None

PATIENT
  Age: 70 Year
  Sex: Female

DRUGS (1)
  1. TIKOSYN [Suspect]
     Active Substance: DOFETILIDE
     Route: 048
     Dates: start: 20140307

REACTIONS (3)
  - Nervous system disorder [None]
  - Burning sensation [None]
  - Varicose vein [None]

NARRATIVE: CASE EVENT DATE: 20150201
